FAERS Safety Report 14439017 (Version 1)
Quarter: 2018Q1

REPORT INFORMATION
  Report Type: Report from Study
  Country: CH (occurrence: CH)
  Receive Date: 20180125
  Receipt Date: 20180125
  Transmission Date: 20180509
  Serious: Yes (Death, Hospitalization)
  Sender: FDA-Public Use
  Company Number: CH-TEVA-2018-CH-852419

PATIENT

DRUGS (4)
  1. ETOPOPHOS [Suspect]
     Active Substance: ETOPOSIDE PHOSPHATE
     Indication: LYMPHOMA
     Dosage: 382 MILLIGRAM DAILY;
     Route: 042
     Dates: start: 20171123, end: 20171126
  2. CYTOSAR [Suspect]
     Active Substance: CYTARABINE
     Indication: LYMPHOMA
     Dosage: 764 MILLIGRAM DAILY;
     Route: 042
     Dates: start: 20171123, end: 20171126
  3. MELPHALAN. [Suspect]
     Active Substance: MELPHALAN
     Indication: LYMPHOMA
     Dosage: 267.4 MILLIGRAM DAILY;
     Route: 042
     Dates: start: 20171127, end: 20171127
  4. BENDAMUSTINE HYDROCHLORIDE. [Suspect]
     Active Substance: BENDAMUSTINE HYDROCHLORIDE
     Indication: LYMPHOMA
     Dosage: 382 MILLIGRAM DAILY;
     Route: 042
     Dates: start: 20171121, end: 20171122

REACTIONS (2)
  - Off label use [Unknown]
  - Gastrointestinal haemorrhage [Fatal]
